FAERS Safety Report 6960612-8 (Version None)
Quarter: 2010Q3

REPORT INFORMATION
  Report Type: 
  Country: None (occurrence: None)
  Receive Date: 20100901
  Receipt Date: 20100819
  Transmission Date: 20110219
  Serious: Yes (Hospitalization, Other)
  Sender: FDA-Public Use
  Company Number: US-ELI_LILLY_AND_COMPANY-US201002005110

PATIENT
  Sex: Female

DRUGS (10)
  1. FORTEO [Suspect]
     Indication: OSTEOPOROSIS
     Dosage: 20 UG, DAILY (1/D)
     Dates: start: 20090710
  2. FORTEO [Suspect]
     Dosage: 20 UG, DAILY (1/D)
  3. ASPIRIN [Concomitant]
     Dosage: UNK, DAILY (1/D)
  4. PRAVASTATIN [Concomitant]
  5. METOPROLOL TARTRATE [Concomitant]
  6. AGGRENOX [Concomitant]
  7. DILTIAZEM [Concomitant]
  8. CITRICAL [Concomitant]
  9. VITAMIN D [Concomitant]
  10. SIMVASTIN [Concomitant]
     Dosage: 40 MG, UNK

REACTIONS (9)
  - ALTERED STATE OF CONSCIOUSNESS [None]
  - DUODENAL PERFORATION [None]
  - GALLBLADDER OBSTRUCTION [None]
  - GASTRIC HAEMORRHAGE [None]
  - GASTROINTESTINAL INFECTION [None]
  - MEMORY IMPAIRMENT [None]
  - RESPIRATORY FAILURE [None]
  - VOMITING [None]
  - WEIGHT DECREASED [None]
